FAERS Safety Report 13042104 (Version 3)
Quarter: 2019Q1

REPORT INFORMATION
  Report Type: Spontaneous
  Country: US (occurrence: US)
  Receive Date: 20161219
  Receipt Date: 20190107
  Transmission Date: 20190417
  Serious: No
  Sender: FDA-Public Use
  Company Number: US-PFIZER INC-2016579779

PATIENT
  Age: 75 Year
  Sex: Male
  Weight: 89.8 kg

DRUGS (15)
  1. RAPAMUNE [Suspect]
     Active Substance: SIROLIMUS
     Indication: CONGENITAL CYSTIC KIDNEY DISEASE
     Dosage: 3 MG, 1X/DAY[3 TAB(S) PO Q DAY]
     Route: 048
     Dates: start: 20181227
  2. PLAVIX [Concomitant]
     Active Substance: CLOPIDOGREL BISULFATE
     Dosage: 75 MG, UNK
  3. RAPAMUNE [Suspect]
     Active Substance: SIROLIMUS
     Indication: END STAGE RENAL DISEASE
     Dosage: 3 MG, DAILY
  4. VITAMIN B12 [Concomitant]
     Active Substance: CYANOCOBALAMIN
     Dosage: 500 UG, DAILY
     Route: 048
  5. ASPIRIN. [Concomitant]
     Active Substance: ASPIRIN
     Dosage: 81 MG, DAILY
     Route: 048
  6. VITAMIN D [Concomitant]
     Active Substance: CHOLECALCIFEROL
     Dosage: 1000 IU, UNK
     Route: 048
  7. SIMVASTATIN. [Concomitant]
     Active Substance: SIMVASTATIN
     Indication: BLOOD CHOLESTEROL INCREASED
     Dosage: 20 MG, 1X/DAY
  8. FLOMAX [Concomitant]
     Active Substance: TAMSULOSIN HYDROCHLORIDE
     Indication: PROSTATISM
     Dosage: 0.4 MG, DAILY
     Route: 048
  9. FLOMAX [Concomitant]
     Active Substance: TAMSULOSIN HYDROCHLORIDE
     Indication: NOCTURIA
  10. FERROUS SULFATE. [Concomitant]
     Active Substance: FERROUS SULFATE
     Dosage: 325 MG, DAILY (65 MG ELEMENTAL IRON)
     Route: 048
  11. PRAVASTATIN. [Concomitant]
     Active Substance: PRAVASTATIN
     Indication: HYPERLIPIDAEMIA
     Dosage: 40 MG, DAILY
     Route: 048
  12. RAPAMUNE [Suspect]
     Active Substance: SIROLIMUS
     Indication: CHRONIC KIDNEY DISEASE
     Dosage: 1 MG, DAILY
     Route: 048
     Dates: start: 2004
  13. RAPAMUNE [Suspect]
     Active Substance: SIROLIMUS
     Indication: GLOMERULONEPHRITIS MEMBRANOUS
  14. LISINOPRIL. [Concomitant]
     Active Substance: LISINOPRIL
     Indication: HYPERTENSION
     Dosage: 20 MG, DAILY
  15. GABAPENTIN. [Concomitant]
     Active Substance: GABAPENTIN
     Dosage: 200 MG, 1X/DAY (AT NIGHT)
     Route: 048

REACTIONS (6)
  - Dizziness [Unknown]
  - Oedema peripheral [Unknown]
  - Back pain [Unknown]
  - Fall [Unknown]
  - Anaemia [Unknown]
  - Intentional product misuse [Unknown]

NARRATIVE: CASE EVENT DATE: 20180418
